FAERS Safety Report 21668802 (Version 1)
Quarter: 2022Q4

REPORT INFORMATION
  Report Type: Spontaneous
  Country: AU (occurrence: AU)
  Receive Date: 20221201
  Receipt Date: 20221201
  Transmission Date: 20230112
  Serious: Yes (Other)
  Sender: FDA-Public Use
  Company Number: AU-TAKEDA-2022TUS090504

PATIENT
  Age: 65 Year
  Sex: Male

DRUGS (3)
  1. ENTYVIO [Suspect]
     Active Substance: VEDOLIZUMAB
     Indication: Colitis ulcerative
     Dosage: 110 MILLIGRAM, Q2WEEKS
     Route: 058
  2. VENLAFAXINE HYDROCHLORIDE [Concomitant]
     Active Substance: VENLAFAXINE HYDROCHLORIDE
     Dosage: UNK
  3. LYRICA [Concomitant]
     Active Substance: PREGABALIN
     Dosage: 600 MILLIGRAM, QD

REACTIONS (4)
  - Colitis ulcerative [Unknown]
  - Injection site pain [Unknown]
  - Injection site mass [Unknown]
  - Injection site discharge [Unknown]

NARRATIVE: CASE EVENT DATE: 20221121
